FAERS Safety Report 9371599 (Version 4)
Quarter: 2015Q1

REPORT INFORMATION
  Report Type: Report from Study
  Country: FR (occurrence: FR)
  Receive Date: 20130627
  Receipt Date: 20150322
  Transmission Date: 20150721
  Serious: Yes (Hospitalization)
  Sender: FDA-Public Use
  Company Number: PHHY2013FR065084

PATIENT
  Age: 63 Year
  Sex: Male

DRUGS (4)
  1. LODOZ [Concomitant]
     Active Substance: BISOPROLOL FUMARATE\HYDROCHLOROTHIAZIDE
     Indication: PRODUCT USED FOR UNKNOWN INDICATION
     Dosage: 1 DF, QD (MORNING)
     Route: 048
  2. TASIGNA [Suspect]
     Active Substance: NILOTINIB
     Indication: CHRONIC MYELOID LEUKAEMIA
     Dosage: 800 MG, QD
     Route: 048
     Dates: start: 20110414
  3. KARDEGIC [Concomitant]
     Active Substance: ASPIRIN LYSINE
     Indication: MYOCARDIAL INFARCTION
     Dosage: 160 MG, QD (EVENING)
     Route: 065
     Dates: start: 201209
  4. KARDEGIC [Concomitant]
     Active Substance: ASPIRIN LYSINE
     Indication: HYPERTENSION
     Dosage: 75 MG, QD
     Route: 065
     Dates: end: 201209

REACTIONS (10)
  - Gamma-glutamyltransferase increased [Unknown]
  - Hypotonia [Not Recovered/Not Resolved]
  - Monoparesis [Unknown]
  - Hypoaesthesia [Unknown]
  - Dyspnoea [Not Recovered/Not Resolved]
  - Systemic inflammatory response syndrome [Unknown]
  - Hepatocellular injury [Unknown]
  - Cerebrovascular accident [Recovered/Resolved]
  - Gait disturbance [Not Recovered/Not Resolved]
  - Ataxia [Unknown]

NARRATIVE: CASE EVENT DATE: 20120119
